FAERS Safety Report 7615606-6 (Version None)
Quarter: 2011Q3

REPORT INFORMATION
  Report Type: 
  Country: None (occurrence: None)
  Receive Date: 20110711
  Receipt Date: 20110613
  Transmission Date: 20111222
  Serious: Yes (Hospitalization)
  Sender: FDA-Public Use
  Company Number: 14559587

PATIENT
  Age: 63 Year
  Sex: Male

DRUGS (7)
  1. ATORVASTATIN CALCIUM [Concomitant]
  2. INDAPAMID (INDAPAMIDE) [Concomitant]
  3. ATENOLOL [Concomitant]
  4. WARFARIN SODIUM [Suspect]
     Indication: THROMBOSIS PROPHYLAXIS
     Dosage: 2 MILLIGRAM 1 DAY ORAL
     Route: 048
     Dates: start: 20081010
  5. PLACEBO [Suspect]
     Indication: THROMBOSIS PROPHYLAXIS
     Dosage: ORAL
     Route: 048
     Dates: start: 20081010
  6. ENALAPRIL MALEATE [Concomitant]
  7. DIGOXIN [Concomitant]

REACTIONS (9)
  - LEFT VENTRICULAR HYPERTROPHY [None]
  - TRICUSPID VALVE INCOMPETENCE [None]
  - PULMONARY HYPERTENSION [None]
  - AORTIC ARTERIOSCLEROSIS [None]
  - ANGINA UNSTABLE [None]
  - CORONARY ARTERY OCCLUSION [None]
  - ASPARTATE AMINOTRANSFERASE INCREASED [None]
  - MITRAL VALVE INCOMPETENCE [None]
  - ALANINE AMINOTRANSFERASE INCREASED [None]
